FAERS Safety Report 9319354 (Version 2)
Quarter: 2013Q3

REPORT INFORMATION
  Report Type: Spontaneous
  Country: FR (occurrence: FR)
  Receive Date: 20130530
  Receipt Date: 20130712
  Transmission Date: 20140515
  Serious: Yes (Death, Hospitalization, Other)
  Sender: FDA-Public Use
  Company Number: FR-ABBOTT-13X-056-1095431-00

PATIENT
  Age: 84 Year
  Sex: Female
  Weight: 37 kg

DRUGS (4)
  1. ZECLAR [Suspect]
     Indication: GASTRODUODENAL ULCER
     Route: 048
     Dates: start: 20130215, end: 20130220
  2. CLAMOXYL [Suspect]
     Indication: GASTRODUODENAL ULCER
     Route: 048
     Dates: start: 20130209, end: 20130214
  3. FLAGYL [Suspect]
     Indication: GASTRODUODENAL ULCER
     Route: 048
     Dates: start: 20130215, end: 20130220
  4. STAGID [Concomitant]
     Indication: PRODUCT USED FOR UNKNOWN INDICATION
     Dates: end: 2013

REACTIONS (11)
  - Asthenia [Unknown]
  - Hepatitis [Fatal]
  - Jaundice [Fatal]
  - Jaundice [Unknown]
  - Bradycardia [Unknown]
  - Weight decreased [Unknown]
  - Faeces pale [Unknown]
  - Acute respiratory distress syndrome [Fatal]
  - Cardiac failure [Unknown]
  - Bronchopneumonia [Unknown]
  - Pulmonary embolism [Unknown]
